FAERS Safety Report 8338856 (Version 5)
Quarter: 2015Q4

REPORT INFORMATION
  Report Type: Spontaneous
  Country: US (occurrence: US)
  Receive Date: 20120117
  Receipt Date: 20151228
  Transmission Date: 20160305
  Serious: Yes (Hospitalization, Other)
  Sender: FDA-Public Use
  Company Number: US-BAYER-2012-004555

PATIENT
  Age: 33 Year
  Sex: Female
  Weight: 97.51 kg

DRUGS (4)
  1. NUVARING [Concomitant]
     Active Substance: ETHINYL ESTRADIOL\ETONOGESTREL
  2. MIRENA [Suspect]
     Active Substance: LEVONORGESTREL
     Indication: CONTRACEPTION
     Dosage: 20 MCG/24HR, CONT
     Route: 015
     Dates: start: 20090121, end: 20120614
  3. MIRENA [Suspect]
     Active Substance: LEVONORGESTREL
     Indication: MENORRHAGIA
     Dosage: 20 MCG/24HR, CONT
     Route: 015
     Dates: start: 20030505, end: 200705
  4. JUNEL FE 1/20 [Concomitant]
     Active Substance: ETHINYL ESTRADIOL\NORETHINDRONE ACETATE

REACTIONS (11)
  - Uterine perforation [None]
  - Depression [None]
  - Device use error [None]
  - Genital haemorrhage [None]
  - Injury [None]
  - Anxiety [None]
  - Pain [None]
  - Emotional distress [None]
  - Device failure [None]
  - Device dislocation [None]
  - Fear [None]

NARRATIVE: CASE EVENT DATE: 201101
